FAERS Safety Report 22182322 (Version 1)
Quarter: 2023Q2

REPORT INFORMATION
  Report Type: Spontaneous
  Country: CN (occurrence: CN)
  Receive Date: 20230406
  Receipt Date: 20230406
  Transmission Date: 20230722
  Serious: Yes (Hospitalization)
  Sender: FDA-Public Use
  Company Number: CN-BAYER-2023A040705

PATIENT
  Age: 86 Year
  Sex: Male

DRUGS (2)
  1. GLUCOBAY [Interacting]
     Active Substance: ACARBOSE
     Indication: Diabetes mellitus
     Dosage: 50 MG, TID
     Route: 048
     Dates: start: 20230201, end: 20230326
  2. ONGLYZA [Interacting]
     Active Substance: SAXAGLIPTIN HYDROCHLORIDE
     Indication: Diabetes mellitus
     Dosage: 5 MG, QD
     Route: 048
     Dates: start: 20230201, end: 20230326

REACTIONS (2)
  - Altered state of consciousness [Recovering/Resolving]
  - Hypoglycaemic coma [Recovering/Resolving]

NARRATIVE: CASE EVENT DATE: 20230326
